FAERS Safety Report 21299760 (Version 1)
Quarter: 2022Q3

REPORT INFORMATION
  Report Type: Report from Study
  Country: US (occurrence: US)
  Receive Date: 20220906
  Receipt Date: 20220906
  Transmission Date: 20221026
  Serious: Yes (Other)
  Sender: FDA-Public Use
  Company Number: US-BRISTOL-MYERS SQUIBB COMPANY-2022-098481

PATIENT
  Age: 78 Year
  Sex: Male
  Weight: 78.02 kg

DRUGS (1)
  1. REVLIMID [Suspect]
     Active Substance: LENALIDOMIDE
     Indication: Plasma cell myeloma
     Dosage: 2 WEEKS ON, 1 WEEK OFF
     Route: 048
     Dates: start: 20210818

REACTIONS (3)
  - Urticaria [Recovered/Resolved]
  - Photophobia [Recovering/Resolving]
  - Off label use [Unknown]
